FAERS Safety Report 19717895 (Version 4)
Quarter: 2021Q3

REPORT INFORMATION
  Report Type: Spontaneous
  Country: US (occurrence: US)
  Receive Date: 20210819
  Receipt Date: 20210903
  Transmission Date: 20211014
  Serious: No
  Sender: FDA-Public Use
  Company Number: US-AMGEN-USASP2021126733

PATIENT
  Age: 56 Year
  Sex: Male

DRUGS (11)
  1. CLOBETASOL PROPION [Concomitant]
     Dosage: UNK
  2. OTEZLA [Suspect]
     Active Substance: APREMILAST
     Indication: PSORIASIS
     Dosage: 30 MILLIGRAM, BID
     Route: 048
     Dates: start: 20210519
  3. CARVEDILOL. [Concomitant]
     Active Substance: CARVEDILOL
     Dosage: UNK
  4. CLOPIDOGREL [Concomitant]
     Active Substance: CLOPIDOGREL BISULFATE
     Dosage: UNK
  5. LOSARTAN. [Concomitant]
     Active Substance: LOSARTAN
     Dosage: UNK
  6. TRIAMCINOLONE [Concomitant]
     Active Substance: TRIAMCINOLONE
     Dosage: UNK
  7. VITAMIN D3 [Concomitant]
     Active Substance: CHOLECALCIFEROL
     Dosage: UNK
  8. ROSUVASTATIN. [Concomitant]
     Active Substance: ROSUVASTATIN
     Dosage: UNK
  9. NOVOLOG [Concomitant]
     Active Substance: INSULIN ASPART
     Dosage: UNK
  10. JARDIANCE [Concomitant]
     Active Substance: EMPAGLIFLOZIN
     Dosage: UNK
  11. TOUJEO MAX [Concomitant]
     Active Substance: INSULIN GLARGINE
     Dosage: UNK

REACTIONS (1)
  - Cough [Not Recovered/Not Resolved]

NARRATIVE: CASE EVENT DATE: 20210810
